FAERS Safety Report 12493695 (Version 3)
Quarter: 2020Q3

REPORT INFORMATION
  Report Type: Report from Study
  Country: ES (occurrence: ES)
  Receive Date: 20160623
  Receipt Date: 20160715
  Transmission Date: 20201105
  Serious: Yes (Life-Threatening, Hospitalization)
  Sender: FDA-Public Use
  Company Number: ES-JNJFOC-20160618470

PATIENT
  Age: 71 Year
  Sex: Male

DRUGS (14)
  1. NEORECORMON [Concomitant]
     Active Substance: ERYTHROPOIETIN
  2. ACICLOVIR [Concomitant]
     Active Substance: ACYCLOVIR
     Route: 048
     Dates: start: 20150806
  3. DARATUMUMAB [Suspect]
     Active Substance: DARATUMUMAB
  4. DARATUMUMAB [Suspect]
     Active Substance: DARATUMUMAB
     Indication: PLASMA CELL MYELOMA
     Dates: start: 20150219
  5. PARACETAMOL [Concomitant]
     Active Substance: ACETAMINOPHEN
     Route: 048
     Dates: start: 20150122
  6. LENALIDOMIDE [Suspect]
     Active Substance: LENALIDOMIDE
     Indication: PLASMA CELL MYELOMA
     Route: 048
     Dates: start: 20150219
  7. DEXAMETHASONE. [Suspect]
     Active Substance: DEXAMETHASONE
     Indication: PLASMA CELL MYELOMA
     Route: 048
     Dates: start: 20150219
  8. PANTECTA [Concomitant]
     Active Substance: PANTOPRAZOLE SODIUM
     Indication: GASTRIC ULCER
     Dates: start: 20130423
  9. DALACINA [Concomitant]
     Dates: start: 20160525
  10. BISOPROLOL [Concomitant]
     Active Substance: BISOPROLOL
     Route: 048
     Dates: start: 20111230
  11. HIBOR (BEMIPARIN SODIUM) [Concomitant]
     Active Substance: BEMIPARIN SODIUM
     Dates: start: 20150806
  12. CALCIUM CARBONATE WITH D3 [Concomitant]
     Dates: start: 20151029
  13. LANTUS [Concomitant]
     Active Substance: INSULIN GLARGINE
     Dates: start: 20160516
  14. NOCTAMID [Concomitant]
     Active Substance: LORMETAZEPAM
     Dates: start: 20130423

REACTIONS (2)
  - Pneumonia [Recovered/Resolved]
  - Septic shock [Recovered/Resolved]

NARRATIVE: CASE EVENT DATE: 20160617
